FAERS Safety Report 23619155 (Version 1)
Quarter: 2024Q1

REPORT INFORMATION
  Report Type: Spontaneous
  Country: US (occurrence: US)
  Receive Date: 20240311
  Receipt Date: 20240311
  Transmission Date: 20240410
  Serious: Yes (Hospitalization)
  Sender: FDA-Public Use
  Company Number: US-Stemline Therapeutics, Inc.-2024ST001586

PATIENT
  Age: 74 Year
  Sex: Female

DRUGS (1)
  1. ORSERDU [Suspect]
     Active Substance: ELACESTRANT
     Indication: Product used for unknown indication
     Route: 048
     Dates: start: 202309, end: 202403

REACTIONS (10)
  - Flatulence [Unknown]
  - Pain [Unknown]
  - Chest pain [Unknown]
  - Abdominal pain [Unknown]
  - Back pain [Unknown]
  - Dehydration [Unknown]
  - Tumour marker increased [Unknown]
  - Lymphatic disorder [Unknown]
  - Drug ineffective [Unknown]
  - Vomiting [Unknown]
